FAERS Safety Report 6293799-3 (Version None)
Quarter: 2009Q3

REPORT INFORMATION
  Report Type: 
  Country: None (occurrence: None)
  Receive Date: 20090803
  Receipt Date: 20090723
  Transmission Date: 20100115
  Serious: Yes (Hospitalization, Other)
  Sender: FDA-Public Use
  Company Number: JP-AMGEN-US357755

PATIENT
  Age: 75 Year
  Sex: Male

DRUGS (3)
  1. ENBREL [Suspect]
     Indication: RHEUMATOID ARTHRITIS
     Route: 058
  2. RHEUMATREX [Concomitant]
     Route: 065
  3. UNSPECIFIED STEROIDS [Concomitant]
     Route: 065

REACTIONS (1)
  - ENCEPHALITIS [None]
